FAERS Safety Report 16927122 (Version 1)
Quarter: 2019Q4

REPORT INFORMATION
  Report Type: Spontaneous
  Country: CA (occurrence: CA)
  Receive Date: 20191016
  Receipt Date: 20191016
  Transmission Date: 20200122
  Serious: Yes (Death)
  Sender: FDA-Public Use
  Company Number: CA-TEVA-2019-CA-1122830

PATIENT
  Age: 64 Year
  Sex: Female

DRUGS (19)
  1. SILDENAFIL CITRATE. [Suspect]
     Active Substance: SILDENAFIL CITRATE
     Indication: PULMONARY HYPERTENSION
     Dosage: 60 MILLIGRAM DAILY;
     Route: 048
  2. ELAVIL [AMITRIPTYLINE PAMOATE] [Concomitant]
     Active Substance: AMITRIPTYLINE PAMOATE
  3. LEVOTHYROXIN [Concomitant]
     Active Substance: LEVOTHYROXINE
  4. ACETAMINOPHEN. [Concomitant]
     Active Substance: ACETAMINOPHEN
  5. ATROVENT [Concomitant]
     Active Substance: IPRATROPIUM BROMIDE
  6. GABAPENTIN. [Concomitant]
     Active Substance: GABAPENTIN
     Dosage: 600 MILLIGRAM DAILY;
  7. SALBUTAMOL [Concomitant]
     Active Substance: ALBUTEROL
  8. SPIRIVA [Concomitant]
     Active Substance: TIOTROPIUM BROMIDE MONOHYDRATE
  9. MACROGOL 3350/POTASSIUM CHLORIDE/SODIUM BICARBONATE/SODIUM CHLORIDE/SO [Concomitant]
     Active Substance: POLYETHYLENE GLYCOL 3350\POTASSIUM CHLORIDE\SODIUM BICARBONATE\SODIUM CHLORIDE\SODIUM SULFATE ANHYDROUS
  10. SERTRALINE [Concomitant]
     Active Substance: SERTRALINE HYDROCHLORIDE
  11. ASA [Concomitant]
     Active Substance: ASPIRIN
  12. CLOPIDOGREL BISULFATE. [Concomitant]
     Active Substance: CLOPIDOGREL BISULFATE
  13. PANTOLOC [PANTOPRAZOLE] [Concomitant]
     Active Substance: PANTOPRAZOLE SODIUM
  14. STATEX [SIMVASTATIN] [Concomitant]
  15. ATIVAN [Concomitant]
     Active Substance: LORAZEPAM
  16. VOLIBRIS [Concomitant]
     Active Substance: AMBRISENTAN
  17. ZENHALE [Concomitant]
     Active Substance: FORMOTEROL FUMARATE\MOMETASONE FUROATE
  18. SENOKOT [Concomitant]
     Active Substance: SENNOSIDES
  19. TRAZODONE [Concomitant]
     Active Substance: TRAZODONE HYDROCHLORIDE

REACTIONS (1)
  - Death [Fatal]
